FAERS Safety Report 24732580 (Version 1)
Quarter: 2024Q4

REPORT INFORMATION
  Report Type: Spontaneous
  Country: RO (occurrence: RO)
  Receive Date: 20241213
  Receipt Date: 20241213
  Transmission Date: 20250114
  Serious: Yes (Other)
  Sender: MERCK
  Company Number: RO-009507513-2412ROU003972

PATIENT
  Age: 56 Year
  Sex: Male

DRUGS (1)
  1. PEMBROLIZUMAB [Suspect]
     Active Substance: PEMBROLIZUMAB
     Indication: Lung adenocarcinoma stage IV
     Dosage: 200 MILLIGRAM, Q3WFOR UP TO 35 CYCLES OR UNTIL DISEASE PROGRESSION OR UNACCEPTABLE TOXICITY
     Dates: start: 202401

REACTIONS (1)
  - Malignant neoplasm oligoprogression [Unknown]
